FAERS Safety Report 6054226-4 (Version None)
Quarter: 2009Q1

REPORT INFORMATION
  Report Type: 
  Country: None (occurrence: None)
  Receive Date: 20090127
  Receipt Date: 20090122
  Transmission Date: 20090719
  Serious: Yes (Other)
  Sender: FDA-Public Use
  Company Number: AT-WYE-G02984809

PATIENT
  Sex: Female

DRUGS (1)
  1. EFFEXOR XR [Suspect]
     Dosage: 2 CAPSULE ADMINISTERED I.V.
     Route: 042
     Dates: start: 20080101

REACTIONS (3)
  - IMPULSIVE BEHAVIOUR [None]
  - INTENTIONAL DRUG MISUSE [None]
  - VOMITING [None]
